FAERS Safety Report 8025082-X (Version None)
Quarter: 2011Q4

REPORT INFORMATION
  Report Type: 
  Country: None (occurrence: None)
  Receive Date: 20111130
  Receipt Date: 20110215
  Transmission Date: 20120403
  Serious: Yes (Hospitalization)
  Sender: FDA-Public Use
  Company Number: TRP_07578_2011

PATIENT
  Age: 52 Year
  Sex: Male
  Weight: 113.3993 kg

DRUGS (23)
  1. LOTREL [Concomitant]
  2. TENORMIN [Concomitant]
  3. LOVENOX [Concomitant]
  4. ACETAMINOPHEN [Concomitant]
  5. ERYTHROMYCIN [Concomitant]
  6. LASIX [Concomitant]
  7. PRILOSEC [Concomitant]
  8. RIBASPHERE [Suspect]
     Indication: HEPATITIS C
     Dosage: 1200 MG, 2 IN 1 D, ORAL
     Route: 048
     Dates: start: 20100314, end: 20110215
  9. POTASSIUM CHLORIDE [Concomitant]
  10. ROZEREM [Concomitant]
  11. ALBUTEROL [Concomitant]
  12. FLONASE [Concomitant]
  13. INTERFERON ALFACON-1 (INTERFERON ALFACON-1) (15 MICROGRAM) [Suspect]
     Indication: HEPATITIS C
     Dosage: 15 MICROGRAM [ALSO NOTED AS (0.5 ML) 30 MCG QD[, 1 IN 1 D, SUBCUTANEOUS
     Route: 058
     Dates: start: 20100314, end: 20110215
  14. PROVIGIL [Concomitant]
  15. ULTRAM [Concomitant]
  16. LUNESTA [Concomitant]
  17. LAMICTAL [Concomitant]
  18. NAPROSYN [Concomitant]
  19. NEURONTIN [Concomitant]
  20. SEROQUEL [Concomitant]
  21. SINGULAIR [Concomitant]
  22. MULTI-VITAMIN [Concomitant]
  23. ZYPREXA [Concomitant]

REACTIONS (1)
  - PNEUMONIA [None]
